APPROVED DRUG PRODUCT: TYCOLET
Active Ingredient: ACETAMINOPHEN; HYDROCODONE BITARTRATE
Strength: 500MG;5MG
Dosage Form/Route: TABLET;ORAL
Application: A089385 | Product #001
Applicant: ORTHO MCNEIL PHARMACEUTICAL INC
Approved: Aug 27, 1986 | RLD: No | RS: No | Type: DISCN